FAERS Safety Report 24729354 (Version 3)
Quarter: 2025Q1

REPORT INFORMATION
  Report Type: Spontaneous
  Country: FR (occurrence: FR)
  Receive Date: 20241213
  Receipt Date: 20250101
  Transmission Date: 20250409
  Serious: Yes (Other)
  Sender: AUROBINDO
  Company Number: FR-AFSSAPS-LL2024002161

PATIENT
  Age: 2 Year
  Sex: Male
  Weight: 14.6 kg

DRUGS (18)
  1. IRINOTECAN [Suspect]
     Active Substance: IRINOTECAN
     Indication: Neoplasm malignant
     Dosage: 50 MILLIGRAM/SQ. METER, ONCE A DAY
     Route: 042
     Dates: start: 20241001, end: 20241005
  2. IRINOTECAN [Suspect]
     Active Substance: IRINOTECAN
     Indication: Neuroblastoma
     Dosage: 50 MILLIGRAM/SQ. METER, ONCE A DAY
     Route: 042
     Dates: start: 20241022, end: 20241026
  3. IRINOTECAN [Suspect]
     Active Substance: IRINOTECAN
     Dosage: 50 MILLIGRAM/SQ. METER, ONCE A DAY
     Route: 042
     Dates: start: 20241112, end: 20241116
  4. IRINOTECAN [Suspect]
     Active Substance: IRINOTECAN
     Dosage: 50 MILLIGRAM/SQ. METER, ONCE A DAY
     Route: 042
     Dates: start: 20241206
  5. TEMOZOLOMIDE [Suspect]
     Active Substance: TEMOZOLOMIDE
     Indication: Neuroblastoma
     Dosage: 100 MILLIGRAM/SQ. METER, ONCE A DAY
     Route: 048
     Dates: start: 20241001, end: 20241005
  6. TEMOZOLOMIDE [Suspect]
     Active Substance: TEMOZOLOMIDE
     Route: 048
     Dates: start: 20241022, end: 20241026
  7. TEMOZOLOMIDE [Suspect]
     Active Substance: TEMOZOLOMIDE
     Dosage: 100 MILLIGRAM/SQ. METER, ONCE A DAY
     Route: 048
     Dates: start: 20241112, end: 20241116
  8. TEMOZOLOMIDE [Suspect]
     Active Substance: TEMOZOLOMIDE
     Dosage: 100 MILLIGRAM/SQ. METER, ONCE A DAY
     Route: 048
     Dates: start: 20241206
  9. DINUTUXIMAB BETA [Concomitant]
     Active Substance: DINUTUXIMAB BETA
     Indication: Neoplasm malignant
     Route: 042
     Dates: start: 20241001
  10. DINUTUXIMAB BETA [Concomitant]
     Active Substance: DINUTUXIMAB BETA
     Indication: Neuroblastoma
  11. AMIKACIN [Concomitant]
     Active Substance: AMIKACIN
     Indication: Clostridium difficile infection
     Dosage: 15 MILLIGRAM/KILOGRAM, ONCE A DAY
     Route: 065
     Dates: start: 20241130
  12. GABAPENTIN [Concomitant]
     Active Substance: GABAPENTIN
     Indication: Pain
     Route: 065
     Dates: start: 20241001
  13. MORPHINE [Concomitant]
     Active Substance: MORPHINE
     Indication: Pain
     Route: 065
     Dates: start: 20241001
  14. SULFAMETHOXAZOLE [Concomitant]
     Active Substance: SULFAMETHOXAZOLE
     Indication: Prophylaxis
     Route: 065
     Dates: start: 20241001
  15. CETIRIZINE [Concomitant]
     Active Substance: CETIRIZINE HYDROCHLORIDE
     Indication: Prophylaxis
     Route: 065
     Dates: start: 20241001
  16. ONDANSETRON [Concomitant]
     Active Substance: ONDANSETRON
     Indication: Antiemetic supportive care
     Route: 065
     Dates: start: 20241001
  17. PIPERACILLIN SODIUM\TAZOBACTAM SODIUM [Concomitant]
     Active Substance: PIPERACILLIN SODIUM\TAZOBACTAM SODIUM
     Indication: Clostridium difficile infection
     Dosage: 100 MILLIGRAM/KILOGRAM, 3 TIMES A DAY
     Route: 065
     Dates: start: 20241130
  18. VANCOMYCIN [Concomitant]
     Active Substance: VANCOMYCIN
     Indication: Clostridium difficile infection
     Dosage: 500 MILLIGRAM, ONCE A DAY
     Route: 065
     Dates: start: 20241002

REACTIONS (3)
  - Diarrhoea [Recovered/Resolved]
  - Clostridium difficile infection [Unknown]
  - Anal inflammation [Recovered/Resolved]

NARRATIVE: CASE EVENT DATE: 20241004
